FAERS Safety Report 18144773 (Version 2)
Quarter: 2020Q3

REPORT INFORMATION
  Report Type: Spontaneous
  Country: US (occurrence: US)
  Receive Date: 20200813
  Receipt Date: 20200923
  Transmission Date: 20201103
  Serious: Yes (Hospitalization)
  Sender: FDA-Public Use
  Company Number: US-SAGE-2020SAGE000075

PATIENT

DRUGS (4)
  1. ZULRESSO [Suspect]
     Active Substance: BREXANOLONE
     Indication: PERINATAL DEPRESSION
     Dosage: 30 MCG/KG/HR(1.9ML/HR) (100 MG/100 ML)
     Route: 042
     Dates: start: 20200804, end: 20200804
  2. ZULRESSO [Suspect]
     Active Substance: BREXANOLONE
     Dosage: 60 MCG/KG/HR(3.79ML/HR) (100 MG/100 ML)
     Route: 042
     Dates: start: 20200804, end: 20200805
  3. RAMELTEON [Suspect]
     Active Substance: RAMELTEON
     Indication: INSOMNIA
     Dosage: UNK
     Route: 065
     Dates: start: 20200804
  4. MELATONIN [Concomitant]
     Active Substance: MELATONIN
     Indication: INSOMNIA
     Dosage: UNK
     Route: 065
     Dates: end: 20200804

REACTIONS (7)
  - Abnormal behaviour [Unknown]
  - Product administration interrupted [Recovered/Resolved]
  - Frustration tolerance decreased [Unknown]
  - Agitation [Unknown]
  - Irritability [Unknown]
  - Insomnia [Unknown]
  - Product administration error [Recovered/Resolved]

NARRATIVE: CASE EVENT DATE: 202008
